FAERS Safety Report 7351103-3 (Version None)
Quarter: 2011Q1

REPORT INFORMATION
  Report Type: 
  Country: None (occurrence: None)
  Receive Date: 20110314
  Receipt Date: 20110310
  Transmission Date: 20110831
  Serious: Yes (Hospitalization)
  Sender: FDA-Public Use
  Company Number: IT-PFIZER INC-2009192195

PATIENT
  Age: 75 Year
  Sex: Male
  Weight: 65 kg

DRUGS (10)
  1. ACENOCOUMAROL [Concomitant]
     Dosage: UNK
     Route: 048
     Dates: start: 19960917
  2. BLINDED EPLERENONE [Suspect]
     Indication: CARDIAC FAILURE
     Dosage: UNK, 1X/DAY
     Route: 048
     Dates: start: 20070424, end: 20090216
  3. BLINDED NO SUBJECT DRUG [Suspect]
     Indication: CARDIAC FAILURE
     Dosage: UNK, 1X/DAY
     Route: 048
     Dates: start: 20070424, end: 20090216
  4. BISOPROLOL [Suspect]
     Dosage: UNK
     Route: 048
     Dates: start: 20070423
  5. LEVOTHYROXINE [Concomitant]
     Dosage: UNK
     Route: 048
     Dates: start: 19970101
  6. AMIODARONE HCL [Suspect]
     Dosage: UNK
     Route: 048
     Dates: start: 19961001
  7. BLINDED PLACEBO [Suspect]
     Indication: CARDIAC FAILURE
     Dosage: UNK, 1X/DAY
     Route: 048
     Dates: start: 20070424, end: 20090216
  8. FUROSEMIDE [Concomitant]
     Dosage: UNK
     Route: 048
     Dates: start: 20070322
  9. RAMIPRIL [Concomitant]
     Dosage: UNK
     Route: 048
     Dates: start: 20070322
  10. OMEPRAZOLE [Concomitant]
     Dosage: UNK
     Dates: start: 20061001

REACTIONS (1)
  - SYNCOPE [None]
